FAERS Safety Report 5321501-8 (Version None)
Quarter: 2007Q2

REPORT INFORMATION
  Report Type: 
  Country: None (occurrence: None)
  Receive Date: 20070510
  Receipt Date: 20070502
  Transmission Date: 20071010
  Serious: Yes (Other)
  Sender: FDA-Public Use
  Company Number: US-ASTRAZENECA-2007UW10163

PATIENT
  Age: 575 Month
  Sex: Female

DRUGS (2)
  1. SEROQUEL [Suspect]
     Indication: BIPOLAR DISORDER
     Dosage: 100 - 200 MG
     Route: 048
     Dates: start: 20040601
  2. SEROQUEL [Suspect]
     Indication: DEPRESSION
     Dosage: 100 - 200 MG
     Route: 048
     Dates: start: 20040601

REACTIONS (2)
  - DIABETES MELLITUS NON-INSULIN-DEPENDENT [None]
  - NEUROPATHY [None]
